FAERS Safety Report 9331484 (Version 1)
Quarter: 2013Q2

REPORT INFORMATION
  Report Type: Spontaneous
  Country: IT (occurrence: None)
  Receive Date: 20130531
  Receipt Date: 20130531
  Transmission Date: 20140414
  Serious: Yes (Life-Threatening, Hospitalization, Other)
  Sender: FDA-Public Use
  Company Number: AUR-APL-2013-04421

PATIENT
  Age: 66 Year
  Sex: Female

DRUGS (1)
  1. METFORMIN (METFORMIN) [Suspect]
     Indication: DIABETES MELLITUS

REACTIONS (8)
  - Metabolic acidosis [None]
  - Cardiac arrest [None]
  - Abdominal pain [None]
  - Vomiting [None]
  - Diarrhoea [None]
  - Continuous haemodiafiltration [None]
  - Anuria [None]
  - Renal impairment [None]
